FAERS Safety Report 13639339 (Version 1)
Quarter: 2017Q2

REPORT INFORMATION
  Report Type: Spontaneous
  Country: US (occurrence: US)
  Receive Date: 20170609
  Receipt Date: 20170609
  Transmission Date: 20170830
  Serious: No
  Sender: FDA-Public Use
  Company Number: US-ROCHE-1409734

PATIENT
  Sex: Female

DRUGS (17)
  1. KLONOPIN [Suspect]
     Active Substance: CLONAZEPAM
     Indication: SEIZURE
     Route: 065
     Dates: start: 1992
  2. KLONOPIN [Suspect]
     Active Substance: CLONAZEPAM
     Indication: MYOCLONIC EPILEPSY
     Dosage: 3-6 MONTHS AFTER START
     Route: 065
  3. PERCODAN (UNITED STATES) [Concomitant]
     Dosage: AS NEEDED
     Route: 065
  4. ETODOLAC. [Concomitant]
     Active Substance: ETODOLAC
     Indication: PAIN
     Dosage: FOR A YEAR OR SO
     Route: 065
  5. TYLENOL #3 (UNITED STATES) [Concomitant]
     Indication: EYE DISORDER
  6. DILTIAZEM. [Concomitant]
     Active Substance: DILTIAZEM
     Indication: HYPERTENSION
  7. TYLENOL #3 (UNITED STATES) [Concomitant]
     Indication: CHRONIC FATIGUE SYNDROME
  8. TYLENOL #3 (UNITED STATES) [Concomitant]
     Indication: FIBROMYALGIA
  9. TIZANIDINE. [Concomitant]
     Active Substance: TIZANIDINE
     Route: 065
     Dates: start: 2009
  10. KLONOPIN [Suspect]
     Active Substance: CLONAZEPAM
     Dosage: 1 IN THE AM, 2 IN THE PM FOR LAST 2 WEEKS
     Route: 065
     Dates: start: 201405
  11. IBUPROFEN. [Concomitant]
     Active Substance: IBUPROFEN
     Indication: PAIN
     Route: 065
  12. NORTRIPTYLINE [Concomitant]
     Active Substance: NORTRIPTYLINE
     Indication: FIBROMYALGIA
  13. DIOVAN [Concomitant]
     Active Substance: VALSARTAN
     Indication: HYPERTENSION
     Route: 065
  14. TYLENOL #3 (UNITED STATES) [Concomitant]
     Indication: PAIN
     Dosage: AS NEEDED, INDICAITON: INTENSE PAIN FROM CHRONIC FATIGUE SYNDROME, FIBROMYALGIA, BRIGHTNESS OF LIGHT
     Route: 065
  15. ETODOLAC. [Concomitant]
     Active Substance: ETODOLAC
     Route: 065
  16. NORTRIPTYLINE [Concomitant]
     Active Substance: NORTRIPTYLINE
     Indication: CHRONIC FATIGUE SYNDROME
  17. LODINE [Concomitant]
     Active Substance: ETODOLAC
     Indication: PAIN
     Dosage: UNTIL STOP OF MANUFACTURE
     Route: 065
     Dates: start: 1991

REACTIONS (4)
  - Keratoconus [Unknown]
  - Hypertension [Recovered/Resolved]
  - Somnolence [Unknown]
  - Asthma [Unknown]

NARRATIVE: CASE EVENT DATE: 2009
